FAERS Safety Report 5296252-9 (Version None)
Quarter: 2007Q2

REPORT INFORMATION
  Report Type: 
  Country: None (occurrence: None)
  Receive Date: 20070413
  Receipt Date: 20070406
  Transmission Date: 20071010
  Serious: Yes (Other)
  Sender: FDA-Public Use
  Company Number: 2007AP02041

PATIENT
  Age: 59 Year
  Sex: Female

DRUGS (9)
  1. OMEPRAZON [Suspect]
     Indication: REFLUX OESOPHAGITIS
     Route: 048
     Dates: start: 20070317, end: 20070331
  2. SLOW-K [Concomitant]
  3. PHOSBLOCK [Concomitant]
  4. FULSTAN [Concomitant]
  5. TENORMIN [Concomitant]
  6. CARDENALIN [Concomitant]
  7. FERROMIA [Concomitant]
  8. EPOGEN [Concomitant]
  9. MIDPELIQ [Concomitant]

REACTIONS (2)
  - DELIRIUM [None]
  - FAECAL INCONTINENCE [None]
